FAERS Safety Report 4429138-X (Version None)
Quarter: 2004Q3

REPORT INFORMATION
  Report Type: 
  Country: None (occurrence: None)
  Receive Date: 20040726
  Receipt Date: 20040310
  Transmission Date: 20050211
  Serious: No
  Sender: FDA-Public Use
  Company Number: USA040361615

PATIENT
  Age: 57 Year
  Sex: Female
  Weight: 79.3795 kg

DRUGS (3)
  1. FORTEO [Suspect]
     Indication: OSTEOPOROSIS
     Dates: start: 20031001
  2. LIPITOR [Concomitant]
  3. VITAMINS NOS [Concomitant]

REACTIONS (5)
  - ABDOMINAL PAIN [None]
  - ADNEXA UTERI PAIN [None]
  - BREAST PAIN [None]
  - BREAST TENDERNESS [None]
  - NAUSEA [None]
